FAERS Safety Report 8150773-X (Version None)
Quarter: 2012Q1

REPORT INFORMATION
  Report Type: 
  Country: None (occurrence: None)
  Receive Date: 20120220
  Receipt Date: 20120209
  Transmission Date: 20120608
  Serious: Yes (Other)
  Sender: FDA-Public Use
  Company Number: MX-SANOFI-AVENTIS-2012SA008971

PATIENT
  Age: 80 Year
  Sex: Male

DRUGS (7)
  1. MULTIVITAMIN [Concomitant]
     Indication: RETINOPATHY
     Route: 047
  2. JANUMET [Concomitant]
     Indication: TYPE 2 DIABETES MELLITUS
     Dosage: DOSE:1 UNIT(S)
  3. MULTI-VITAMINS [Concomitant]
     Indication: VITAMIN SUPPLEMENTATION
     Dosage: DOSE:1 UNIT(S)
     Route: 048
     Dates: start: 20120101
  4. ACETYLSALICYLIC ACID SRT [Interacting]
     Route: 048
  5. MULTIVITAMIN [Concomitant]
     Indication: MYOPIA
     Route: 047
  6. DRONEDARONE HCL [Suspect]
     Indication: ATRIAL FIBRILLATION
     Route: 048
     Dates: start: 20100101
  7. REPAGLINIDE [Concomitant]
     Indication: TYPE 2 DIABETES MELLITUS
     Dosage: DOSE:1 UNIT(S)
     Route: 048

REACTIONS (6)
  - CONJUNCTIVAL HAEMORRHAGE [None]
  - VOMITING [None]
  - HAEMATURIA [None]
  - DRUG INTERACTION [None]
  - PRURITUS [None]
  - NAUSEA [None]
